FAERS Safety Report 4582725-0 (Version None)
Quarter: 2005Q1

REPORT INFORMATION
  Report Type: 
  Country: None (occurrence: None)
  Receive Date: 20050125
  Receipt Date: 20040719
  Transmission Date: 20050727
  Serious: Yes (Hospitalization)
  Sender: FDA-Public Use
  Company Number: PHEH2003US10247

PATIENT
  Age: 45 Year
  Sex: Male

DRUGS (2)
  1. SANDOSTATIN LAR [Suspect]
     Indication: CARCINOID SYNDROME
     Dosage: 30 MG, QMO, INJECTION NOS; 30 MG, QMO
     Dates: start: 20031013, end: 20031213
  2. SANDOSTATIN LAR [Suspect]
     Indication: CARCINOID SYNDROME
     Dosage: 30 MG, QMO, INJECTION NOS; 30 MG, QMO
     Dates: start: 20040401

REACTIONS (10)
  - ABDOMINAL DISTENSION [None]
  - ABDOMINAL PAIN [None]
  - CHOLECYSTECTOMY [None]
  - CHOLELITHIASIS [None]
  - DIARRHOEA [None]
  - EYE IRRITATION [None]
  - FLATULENCE [None]
  - FLUSHING [None]
  - THROAT IRRITATION [None]
  - WHEEZING [None]
